FAERS Safety Report 17340047 (Version 1)
Quarter: 2020Q1

REPORT INFORMATION
  Report Type: Spontaneous
  Country: US (occurrence: US)
  Receive Date: 20200114
  Receipt Date: 20200114
  Transmission Date: 20200409
  Serious: Yes (Other)
  Sender: FDA-Public Use
  Company Number: None

PATIENT
  Age: 6 Year
  Sex: Female

DRUGS (1)
  1. OSELTAMIVIR 6MG/ML SUS ALV [Suspect]
     Active Substance: OSELTAMIVIR
     Route: 048
     Dates: start: 20200110, end: 20200112

REACTIONS (1)
  - Gingival hypertrophy [None]

NARRATIVE: CASE EVENT DATE: 20200112
